FAERS Safety Report 12461446 (Version 1)
Quarter: 2016Q2

REPORT INFORMATION
  Report Type: Spontaneous
  Country: PT (occurrence: PT)
  Receive Date: 20160613
  Receipt Date: 20160613
  Transmission Date: 20160815
  Serious: Yes (Hospitalization, Other)
  Sender: FDA-Public Use
  Company Number: PT-ELI_LILLY_AND_COMPANY-PT201606004208

PATIENT
  Age: 41 Year
  Sex: Male

DRUGS (1)
  1. OLANZAPINE. [Suspect]
     Active Substance: OLANZAPINE
     Indication: PRODUCT USED FOR UNKNOWN INDICATION
     Dosage: 2.5 MG, UNKNOWN
     Route: 065

REACTIONS (10)
  - Delusion [Recovered/Resolved]
  - Muscle rigidity [Unknown]
  - Haemodynamic instability [Unknown]
  - Neuroleptic malignant syndrome [Recovering/Resolving]
  - Mutism [Unknown]
  - Leukocytosis [Unknown]
  - Pyrexia [Unknown]
  - Negativism [Unknown]
  - Catatonia [Recovering/Resolving]
  - Rhabdomyolysis [Unknown]
